FAERS Safety Report 6088520-8 (Version None)
Quarter: 2009Q1

REPORT INFORMATION
  Report Type: 
  Country: None (occurrence: None)
  Receive Date: 20090224
  Receipt Date: 20090212
  Transmission Date: 20090719
  Serious: Yes (Other)
  Sender: FDA-Public Use
  Company Number: DK-JNJFOC-20081002577

PATIENT
  Sex: Male

DRUGS (7)
  1. REMICADE [Suspect]
     Indication: RHEUMATOID ARTHRITIS
     Route: 042
  2. SALAZOPYRIN [Concomitant]
  3. CARDURA [Concomitant]
  4. SPARKAL [Concomitant]
  5. AMLODIPINE [Concomitant]
  6. PREDNISOLONE [Concomitant]
  7. ENBREL [Concomitant]

REACTIONS (1)
  - NEPHROTIC SYNDROME [None]
